FAERS Safety Report 6070182-7 (Version None)
Quarter: 2009Q1

REPORT INFORMATION
  Report Type: 
  Country: None (occurrence: None)
  Receive Date: 20090209
  Receipt Date: 20090127
  Transmission Date: 20090719
  Serious: Yes (Hospitalization, Disabling, Other)
  Sender: FDA-Public Use
  Company Number: IT-CELGENEUS-083-21880-08111261

PATIENT
  Sex: Male
  Weight: 97 kg

DRUGS (21)
  1. REVLIMID [Suspect]
     Indication: DIFFUSE LARGE B-CELL LYMPHOMA
     Route: 048
     Dates: start: 20080628, end: 20080926
  2. REVLIMID [Suspect]
     Route: 048
  3. ENDOXAN [Suspect]
     Indication: DIFFUSE LARGE B-CELL LYMPHOMA
     Route: 065
     Dates: start: 20080628
  4. ADRIBLASTIN [Suspect]
     Indication: DIFFUSE LARGE B-CELL LYMPHOMA
     Route: 065
     Dates: start: 20080628
  5. VINCRISTINE [Suspect]
     Indication: DIFFUSE LARGE B-CELL LYMPHOMA
     Route: 065
     Dates: start: 20080628, end: 20080926
  6. PREDNISONE [Suspect]
     Indication: DIFFUSE LARGE B-CELL LYMPHOMA
     Route: 065
     Dates: start: 20080628
  7. RITUXIMAB [Suspect]
     Indication: DIFFUSE LARGE B-CELL LYMPHOMA
     Route: 065
     Dates: start: 20080628
  8. BACTRIM [Concomitant]
     Route: 048
     Dates: start: 20080830, end: 20090109
  9. BACTRIM [Concomitant]
  10. ZEFFIX [Concomitant]
     Route: 048
     Dates: start: 20080830
  11. ZEFFIX [Concomitant]
  12. LIMPIDEX [Concomitant]
     Route: 048
     Dates: start: 20080830
  13. LIMPIDEX [Concomitant]
  14. LANOXIN [Concomitant]
     Dosage: 0.25
     Route: 048
     Dates: start: 20080830
  15. LANOXIN [Concomitant]
  16. ZYLORIC [Concomitant]
     Route: 048
     Dates: start: 20080830
  17. ZYLORIC [Concomitant]
  18. TAZOCIN [Concomitant]
     Route: 048
     Dates: start: 20081110, end: 20081117
  19. TAZOCIN [Concomitant]
  20. POLASE [Concomitant]
     Route: 048
     Dates: start: 20081117
  21. POLASE [Concomitant]

REACTIONS (2)
  - PANCYTOPENIA [None]
  - PERIPHERAL SENSORY NEUROPATHY [None]
